FAERS Safety Report 7511660-0 (Version None)
Quarter: 2011Q2

REPORT INFORMATION
  Report Type: 
  Country: None (occurrence: None)
  Receive Date: 20110531
  Receipt Date: 20110520
  Transmission Date: 20111010
  Serious: Yes (Death)
  Sender: FDA-Public Use
  Company Number: US-JNJFOC-20110510930

PATIENT
  Sex: Female
  Weight: 61.24 kg

DRUGS (2)
  1. DIPHENHYDRAMINE HYDROCHLORIDE [Suspect]
     Indication: INSOMNIA
     Route: 048
  2. VALIUM [Suspect]
     Indication: INSOMNIA

REACTIONS (2)
  - INCORRECT DRUG ADMINISTRATION DURATION [None]
  - DEATH [None]
